FAERS Safety Report 15569123 (Version 1)
Quarter: 2018Q4

REPORT INFORMATION
  Report Type: Spontaneous
  Country: US (occurrence: US)
  Receive Date: 20181031
  Receipt Date: 20181031
  Transmission Date: 20190205
  Serious: Yes (Death, Hospitalization, Other)
  Sender: FDA-Public Use
  Company Number: US-ASTELLAS-2018US045906

PATIENT
  Sex: Male

DRUGS (3)
  1. TACROLIMUS. [Suspect]
     Active Substance: TACROLIMUS
     Indication: PROPHYLAXIS AGAINST GRAFT VERSUS HOST DISEASE
     Dosage: UNK UNK, UNKNOWN FREQ.
     Route: 065
  2. MYCOPHENOLATE MOFETIL. [Concomitant]
     Active Substance: MYCOPHENOLATE MOFETIL
     Indication: PROPHYLAXIS AGAINST GRAFT VERSUS HOST DISEASE
     Dosage: UNK UNK, UNKNOWN FREQ.
     Route: 065
  3. FLUDARABINE [Concomitant]
     Active Substance: FLUDARABINE PHOSPHATE
     Indication: STEM CELL TRANSPLANT
     Route: 065

REACTIONS (12)
  - Cardio-respiratory arrest [Fatal]
  - Body temperature fluctuation [Unknown]
  - Hypoxia [Unknown]
  - Pulseless electrical activity [Unknown]
  - Diarrhoea [Unknown]
  - Acute respiratory distress syndrome [Unknown]
  - Necrotising fasciitis [Unknown]
  - Product use in unapproved indication [Unknown]
  - Pneumonia klebsiella [Unknown]
  - Acute graft versus host disease in intestine [Unknown]
  - Vomiting [Unknown]
  - Acute kidney injury [Unknown]
